FAERS Safety Report 16688356 (Version 1)
Quarter: 2019Q3

REPORT INFORMATION
  Report Type: Spontaneous
  Country: BE (occurrence: BE)
  Receive Date: 20190809
  Receipt Date: 20190809
  Transmission Date: 20191004
  Serious: Yes (Hospitalization, Other)
  Sender: FDA-Public Use
  Company Number: BE-BRISTOL-MYERS SQUIBB COMPANY-BMS-2019-076097

PATIENT
  Age: 55 Year
  Sex: Female

DRUGS (1)
  1. NIVOLUMAB [Suspect]
     Active Substance: NIVOLUMAB
     Indication: MALIGNANT MELANOMA
     Dosage: UNAVAILABLE
     Route: 065
     Dates: start: 201902

REACTIONS (8)
  - Pleural effusion [Unknown]
  - Protein-losing gastroenteropathy [Unknown]
  - Pericardial effusion [Unknown]
  - Vitamin D decreased [Unknown]
  - Colitis [Unknown]
  - Oedema peripheral [Unknown]
  - Blood cholesterol decreased [Unknown]
  - Hypoalbuminaemia [Unknown]
